FAERS Safety Report 5961576-6 (Version None)
Quarter: 2008Q4

REPORT INFORMATION
  Report Type: 
  Country: None (occurrence: None)
  Receive Date: 20081121
  Receipt Date: 20081117
  Transmission Date: 20090506
  Serious: Yes (Hospitalization)
  Sender: FDA-Public Use
  Company Number: B0546626A

PATIENT
  Age: 80 Year
  Sex: Female

DRUGS (8)
  1. AMOXICILLIN TRIHYDRATE [Suspect]
     Indication: URINARY TRACT INFECTION
     Dosage: 1G TWICE PER DAY
     Route: 048
     Dates: start: 20080905, end: 20080912
  2. CIPROFLOXACIN HYDROCHLORIDE [Suspect]
     Indication: URINARY TRACT INFECTION
     Dosage: 250MG PER DAY
     Route: 048
     Dates: start: 20080905, end: 20080912
  3. EZETROL [Concomitant]
     Dosage: 10MG PER DAY
     Route: 048
  4. PREVISCAN [Concomitant]
     Route: 048
     Dates: start: 20040101, end: 20080908
  5. NEXIUM [Concomitant]
     Route: 048
  6. LEVOTHYROX [Concomitant]
     Indication: HYPOTHYROIDISM
     Dosage: 50MCG PER DAY
     Route: 048
  7. FLECAINE [Concomitant]
     Dosage: 50MG TWICE PER DAY
     Route: 048
     Dates: start: 20080901, end: 20080901
  8. TEMESTA [Concomitant]
     Dosage: 1.25MG PER DAY
     Route: 048

REACTIONS (1)
  - RENAL FAILURE ACUTE [None]
